FAERS Safety Report 8274691-1 (Version None)
Quarter: 2012Q2

REPORT INFORMATION
  Report Type: 
  Country: None (occurrence: None)
  Receive Date: 20120411
  Receipt Date: 20120330
  Transmission Date: 20120825
  Serious: Yes (Death, Life-Threatening, Hospitalization)
  Sender: FDA-Public Use
  Company Number: AU-CELGENEUS-008-50794-12012767

PATIENT
  Sex: Female
  Weight: 66.2 kg

DRUGS (2)
  1. VIDAZA [Suspect]
     Route: 065
     Dates: start: 20120103, end: 20120106
  2. VIDAZA [Suspect]
     Route: 065
     Dates: start: 20120109, end: 20120111

REACTIONS (2)
  - ACUTE MYELOID LEUKAEMIA [None]
  - CATHETER SITE HAEMORRHAGE [None]
